FAERS Safety Report 20836588 (Version 2)
Quarter: 2022Q2

REPORT INFORMATION
  Report Type: Report from Study
  Country: US (occurrence: US)
  Receive Date: 20220517
  Receipt Date: 20220624
  Transmission Date: 20220721
  Serious: Yes (Other)
  Sender: FDA-Public Use
  Company Number: US-HORIZON THERAPEUTICS-HZN-2022-002323

PATIENT

DRUGS (1)
  1. TEPEZZA [Suspect]
     Active Substance: TEPROTUMUMAB-TRBW
     Indication: Endocrine ophthalmopathy
     Dosage: FIRST INFUSION
     Route: 042
     Dates: start: 20220324

REACTIONS (17)
  - Genital abscess [Unknown]
  - Eye disorder [Unknown]
  - Blood pressure increased [Recovering/Resolving]
  - Pain [Unknown]
  - Pain in extremity [Unknown]
  - Fungal infection [Unknown]
  - Muscle spasms [Not Recovered/Not Resolved]
  - Nausea [Unknown]
  - Headache [Unknown]
  - Condition aggravated [Unknown]
  - Eye pain [Unknown]
  - Dry eye [Unknown]
  - Visual impairment [Unknown]
  - Eye swelling [Not Recovered/Not Resolved]
  - Pruritus [Unknown]
  - Joint lock [Unknown]
  - Hordeolum [Unknown]

NARRATIVE: CASE EVENT DATE: 20220101
